FAERS Safety Report 16563667 (Version 1)
Quarter: 2019Q3

REPORT INFORMATION
  Report Type: Spontaneous
  Country: US (occurrence: US)
  Receive Date: 20190712
  Receipt Date: 20190712
  Transmission Date: 20191004
  Serious: Yes (Other)
  Sender: FDA-Public Use
  Company Number: US-CIPLA LTD.-2019US04983

PATIENT

DRUGS (6)
  1. ASPIRINE [Suspect]
     Active Substance: ASPIRIN
     Indication: THROMBOSIS
     Dosage: UNK
     Route: 065
  2. CLOPIDOGREL [Suspect]
     Active Substance: CLOPIDOGREL BISULFATE
     Indication: THROMBOSIS
     Dosage: 75 MILLIGRAM, DAILY
     Route: 065
  3. WARFARIN [Suspect]
     Active Substance: WARFARIN
     Indication: ATRIAL FIBRILLATION
     Dosage: UNK
     Route: 065
  4. ASPIRINE [Suspect]
     Active Substance: ASPIRIN
     Dosage: 81 MILLIGRAM, DAILY
     Route: 065
  5. WARFARIN [Suspect]
     Active Substance: WARFARIN
     Indication: THROMBOSIS
     Dosage: UNK, RE-STARTED, TAKEN FOR SEVERAL MONTHS
     Route: 065
  6. ASPIRINE [Suspect]
     Active Substance: ASPIRIN
     Dosage: 325 MILLIGRAM, DAILY, FOR SEVERAL MONTHS
     Route: 065

REACTIONS (2)
  - Treatment failure [Unknown]
  - Lower gastrointestinal haemorrhage [Unknown]
